FAERS Safety Report 26132004 (Version 1)
Quarter: 2025Q4

REPORT INFORMATION
  Report Type: Spontaneous
  Country: JP (occurrence: JP)
  Receive Date: 20251208
  Receipt Date: 20251208
  Transmission Date: 20260117
  Serious: Yes (Other)
  Sender: AMGEN
  Company Number: JP-AMGEN-JPNSP2025240575

PATIENT

DRUGS (4)
  1. BEVACIZUMAB [Suspect]
     Active Substance: BEVACIZUMAB
     Indication: Hepatocellular carcinoma
     Dosage: UNK
     Route: 065
  2. CABOZANTINIB [Suspect]
     Active Substance: CABOZANTINIB
     Indication: Hepatocellular carcinoma
     Dosage: UNK, QD (60 MG, 40 MG, OR 20 MG)
     Route: 065
  3. ATEZOLIZUMAB [Concomitant]
     Active Substance: ATEZOLIZUMAB
     Indication: Hepatocellular carcinoma
  4. LENVATINIB [Concomitant]
     Active Substance: LENVATINIB
     Indication: Hepatocellular carcinoma

REACTIONS (11)
  - Hepatocellular carcinoma [Unknown]
  - Hypothyroidism [Unknown]
  - Decreased appetite [Unknown]
  - Proteinuria [Unknown]
  - Palmar-plantar erythrodysaesthesia syndrome [Unknown]
  - Diarrhoea [Unknown]
  - Haemorrhage [Unknown]
  - Fatigue [Unknown]
  - Hypertension [Unknown]
  - Pyrexia [Unknown]
  - Off label use [Unknown]
